FAERS Safety Report 25437563 (Version 1)
Quarter: 2025Q2

REPORT INFORMATION
  Report Type: Spontaneous
  Country: FR (occurrence: FR)
  Receive Date: 20250616
  Receipt Date: 20250616
  Transmission Date: 20250716
  Serious: Yes (Other)
  Sender: JOHNSON AND JOHNSON
  Company Number: None

PATIENT
  Age: 73 Year
  Sex: Male
  Weight: 75 kg

DRUGS (3)
  1. TECVAYLI [Suspect]
     Active Substance: TECLISTAMAB-CQYV
     Indication: Plasma cell myeloma
     Dates: start: 20221015, end: 20250414
  2. KYPROLIS [Concomitant]
     Active Substance: CARFILZOMIB
     Indication: Plasma cell myeloma
     Dates: start: 20201115, end: 20220915
  3. DARZALEX [Concomitant]
     Active Substance: DARATUMUMAB
     Indication: Plasma cell myeloma
     Dates: start: 20201115, end: 20220915

REACTIONS (2)
  - Squamous cell carcinoma of skin [Recovered/Resolved]
  - Squamous cell carcinoma of skin [Recovered/Resolved]

NARRATIVE: CASE EVENT DATE: 20240305
